FAERS Safety Report 6663434-0 (Version None)
Quarter: 2010Q2

REPORT INFORMATION
  Report Type: 
  Country: None (occurrence: None)
  Receive Date: 20100401
  Receipt Date: 20100326
  Transmission Date: 20101027
  Serious: Yes (Life-Threatening)
  Sender: FDA-Public Use
  Company Number: FR-SANOFI-AVENTIS-2010SA017481

PATIENT
  Age: 59 Year
  Sex: Female

DRUGS (9)
  1. LOVENOX [Suspect]
     Route: 058
     Dates: start: 20100313, end: 20100316
  2. TEGELINE [Suspect]
     Dosage: LAST DOSE RECEIVED IN THE MORNING OF 16-MAR-2010
     Route: 042
     Dates: start: 20100314, end: 20100316
  3. TEGELINE [Suspect]
     Dosage: LAST DOSE RECEIVED IN THE MORNING OF 16-MAR-2010
     Route: 042
     Dates: start: 20100314, end: 20100316
  4. TEGELINE [Suspect]
     Dosage: LAST DOSE RECEIVED IN THE MORNING OF 16-MAR-2010
     Route: 042
     Dates: start: 20100314, end: 20100316
  5. MALARONE [Concomitant]
     Indication: MALARIA
     Route: 048
     Dates: start: 20090301
  6. MYOLASTAN [Concomitant]
     Route: 048
     Dates: start: 20100310
  7. PARACETAMOL [Concomitant]
     Route: 065
     Dates: start: 20100310
  8. ACUPAN [Concomitant]
     Indication: ANALGESIC THERAPY
     Route: 065
     Dates: start: 20100101
  9. MORPHINE [Concomitant]
     Indication: ANALGESIC THERAPY
     Route: 065
     Dates: start: 20100101

REACTIONS (2)
  - CEREBRAL HAEMATOMA [None]
  - HYPERTENSION [None]
